FAERS Safety Report 18396398 (Version 6)
Quarter: 2021Q3

REPORT INFORMATION
  Report Type: Spontaneous
  Country: GB (occurrence: GB)
  Receive Date: 20201019
  Receipt Date: 20210901
  Transmission Date: 20211014
  Serious: Yes (Death, Other)
  Sender: FDA-Public Use
  Company Number: GB-AUROBINDO-AUR-APL-2020-052457

PATIENT
  Age: 68 Year
  Sex: Male

DRUGS (10)
  1. ATORVASTATIN FILM?COATED TABLETS 20MG [Suspect]
     Active Substance: ATORVASTATIN
     Dosage: UNIT DOSE 20 MG ,ATORVASTATIN 20 MG UNKNOWN, ATORVASTATIN LABORATORIOS LICONSA 20 MG   UNK
     Route: 065
  2. BISOPROLOL FUMARATE FILM?COATED TABLETS 2.5MG [Suspect]
     Active Substance: BISOPROLOL FUMARATE
     Indication: PRODUCT USED FOR UNKNOWN INDICATION
     Dosage: 2.5 MILLIGRAM UNKNOWN
     Route: 065
  3. ASPIRIN. [Suspect]
     Active Substance: ASPIRIN
     Indication: PRODUCT USED FOR UNKNOWN INDICATION
     Dosage: 75 MILLIGRAM, UNK
     Route: 065
  4. ATORVASTATIN FILM?COATED TABLETS 20MG [Suspect]
     Active Substance: ATORVASTATIN
     Indication: PRODUCT USED FOR UNKNOWN INDICATION
     Dosage: 20 MILLIGRAM,UNIT DOSE 20 MG ,ATORVASTATIN 20 MG UNKNOWN, ATORVASTATIN LABORATORIOS LICONSA 20 MG
     Route: 065
  5. OMEPRAZOLE. [Suspect]
     Active Substance: OMEPRAZOLE
     Indication: PRODUCT USED FOR UNKNOWN INDICATION
     Dosage: 20 MILLIGRAM, UNKNOWN
     Route: 065
  6. OMEPRAZOLE. [Suspect]
     Active Substance: OMEPRAZOLE
     Dosage: 20 MILLIGRAM, UNKNOWN OMEPRAZOLE CHEMO IBERICA S.A. 20 MG
     Route: 065
  7. ATORVASTATIN FILM?COATED TABLETS 20MG [Suspect]
     Active Substance: ATORVASTATIN
     Dosage: 20 MILLIGRAM(STRENGTH?20 MG,ATORVASTATIN LABORATORIOS LICONSA )
     Route: 065
  8. OMEPRAZOLE. [Suspect]
     Active Substance: OMEPRAZOLE
     Dosage: OMEPRAZOLE 20 MG UNKNOWN, UNIT DOSE: 20 MG, DRUG NOT ADMINISTERED
     Route: 065
  9. ASPIRIN. [Suspect]
     Active Substance: ASPIRIN
     Dosage: ACETYLSALICYLIC ACID 75 MG UNKNOWN, UNIT DOSE: 75 MG, DRUG NOT ADMINISTERED
     Route: 065
  10. OMEPRAZOLE. [Suspect]
     Active Substance: OMEPRAZOLE
     Dosage: UNK
     Route: 065

REACTIONS (4)
  - Death [Fatal]
  - Product dispensing error [Fatal]
  - Product dose omission issue [Fatal]
  - Product storage error [Fatal]

NARRATIVE: CASE EVENT DATE: 20200424
